FAERS Safety Report 17872872 (Version 1)
Quarter: 2020Q2

REPORT INFORMATION
  Report Type: Other
  Country: IT (occurrence: IT)
  Receive Date: 20200608
  Receipt Date: 20200608
  Transmission Date: 20200714
  Serious: Yes (Death)
  Sender: FDA-Public Use
  Company Number: IT-INCYTE CORPORATION-2020IN005128

PATIENT

DRUGS (2)
  1. SOLIRIS [Suspect]
     Active Substance: ECULIZUMAB
     Indication: CORONAVIRUS INFECTION
     Dosage: 900 MG, CYCLIC
     Route: 042
     Dates: start: 20200407
  2. JAKAVI [Suspect]
     Active Substance: RUXOLITINIB
     Indication: CORONAVIRUS INFECTION
     Dosage: 25 MG
     Route: 048
     Dates: start: 20200407

REACTIONS (2)
  - Drug ineffective for unapproved indication [Fatal]
  - Coronavirus infection [Fatal]
